FAERS Safety Report 9158053 (Version 7)
Quarter: 2013Q2

REPORT INFORMATION
  Report Type: Spontaneous
  Country: US (occurrence: US)
  Receive Date: 20130312
  Receipt Date: 20130509
  Transmission Date: 20140414
  Serious: No
  Sender: FDA-Public Use
  Company Number: US-VERTEX PHARMACEUTICALS INC.-2013-003304

PATIENT
  Age: 51 Year
  Sex: Female
  Weight: 101 kg

DRUGS (13)
  1. INCIVEK [Suspect]
     Indication: HEPATITIS C
     Dosage: 750 MG, TID
     Route: 048
     Dates: start: 20130226
  2. RIBAVIRIN [Suspect]
     Indication: HEPATITIS C
     Dosage: 600 MG, BID
     Route: 048
     Dates: start: 20130226
  3. PEGASYS [Suspect]
     Indication: HEPATITIS C
     Dosage: 180 ?G, QW
     Route: 058
     Dates: start: 20130226
  4. BYSTOLIC [Concomitant]
     Dosage: 5 MG, UNK
  5. FLUOXETINE [Concomitant]
     Dosage: 20 MG, UNK
  6. HYDROCORTISONE [Concomitant]
     Dosage: 1 %, UNK
  7. LORATADINE [Concomitant]
     Dosage: 10 MG, UNK
  8. MELOXICAM [Concomitant]
     Dosage: .5 MG, UNK
  9. ONDANSETRON [Concomitant]
     Indication: NAUSEA
     Dosage: 4 MG, TID, PRN
     Route: 048
  10. PHENERGAN [Concomitant]
     Dosage: 25 MG, TID, AS NEEDED
     Route: 048
  11. PREMARIN [Concomitant]
     Dosage: 0.625 MG, UNK
  12. RANEXA [Concomitant]
     Dosage: 1000 MG, UNK
  13. TRAMADOL [Concomitant]
     Dosage: 50 MG, UNK

REACTIONS (18)
  - Drug dose omission [Recovered/Resolved]
  - Influenza like illness [Not Recovered/Not Resolved]
  - Vulvovaginal mycotic infection [Unknown]
  - Oral pain [Recovered/Resolved]
  - Gingival bleeding [Recovered/Resolved]
  - Headache [Unknown]
  - Pain [Not Recovered/Not Resolved]
  - Decreased appetite [Not Recovered/Not Resolved]
  - Fatigue [Unknown]
  - Rash [Not Recovered/Not Resolved]
  - Pruritus generalised [Not Recovered/Not Resolved]
  - Anal pruritus [Not Recovered/Not Resolved]
  - Diarrhoea [Recovered/Resolved]
  - Vomiting [Not Recovered/Not Resolved]
  - Nausea [Not Recovered/Not Resolved]
  - Dysgeusia [Not Recovered/Not Resolved]
  - Anaemia [Unknown]
  - Anorectal discomfort [Unknown]
